FAERS Safety Report 5913183-9 (Version None)
Quarter: 2008Q4

REPORT INFORMATION
  Report Type: 
  Country: None (occurrence: None)
  Receive Date: 20081006
  Receipt Date: 20080926
  Transmission Date: 20090506
  Serious: Yes (Hospitalization)
  Sender: FDA-Public Use
  Company Number: 2008AL009406

PATIENT
  Age: 79 Year
  Sex: Female
  Weight: 61.6892 kg

DRUGS (9)
  1. DIGOXIN [Suspect]
     Indication: ATRIAL FIBRILLATION
     Dosage: 0.125MG, DAILY, PO
     Route: 048
  2. DIGOXIN [Suspect]
     Indication: PALPITATIONS
     Dosage: 0.125MG, DAILY, PO
     Route: 048
  3. GLIPIZIDE [Concomitant]
  4. VERAPAMIL HYDROCHLORIDE [Concomitant]
  5. ADVAIR DISKUS 100/50 [Concomitant]
  6. CALAN [Concomitant]
  7. CLONAZEPAM [Concomitant]
  8. VENTOLIN [Concomitant]
  9. AMOXICILLIN [Concomitant]

REACTIONS (37)
  - ACUTE SINUSITIS [None]
  - AMNESIA [None]
  - ANXIETY [None]
  - AORTIC ARTERIOSCLEROSIS [None]
  - AORTIC STENOSIS [None]
  - ASTHENIA [None]
  - ATRIAL FIBRILLATION [None]
  - BONE PAIN [None]
  - BREAST PAIN [None]
  - CARDIAC MURMUR [None]
  - CERUMEN IMPACTION [None]
  - CONSTIPATION [None]
  - COUGH [None]
  - DEVICE BREAKAGE [None]
  - DIZZINESS [None]
  - DYSPNOEA EXERTIONAL [None]
  - EAR PAIN [None]
  - ELECTROCARDIOGRAM ST-T SEGMENT ABNORMAL [None]
  - FATIGUE [None]
  - FEAR [None]
  - HEADACHE [None]
  - HEART RATE DECREASED [None]
  - HYPOPHAGIA [None]
  - INTERNATIONAL NORMALISED RATIO INCREASED [None]
  - LIP NEOPLASM [None]
  - LYMPHADENOPATHY [None]
  - MUSCULOSKELETAL PAIN [None]
  - NOCTURIA [None]
  - OROPHARYNGEAL PAIN [None]
  - PALPITATIONS [None]
  - PHARYNGEAL DISORDER [None]
  - POSTNASAL DRIP [None]
  - PULMONARY CONGESTION [None]
  - ROTATOR CUFF SYNDROME [None]
  - TREATMENT NONCOMPLIANCE [None]
  - TREMOR [None]
  - WHEEZING [None]
